FAERS Safety Report 9845470 (Version 1)
Quarter: 2013Q4

REPORT INFORMATION
  Report Type: Spontaneous
  Country: US (occurrence: None)
  Receive Date: 20131223
  Receipt Date: 20131223
  Transmission Date: 20140711
  Serious: Yes (Death)
  Sender: FDA-Public Use
  Company Number: 45348

PATIENT
  Age: 69 Year
  Sex: Male

DRUGS (1)
  1. GLASSIA [Suspect]
     Indication: ALPHA-1 ANTI-TRYPSIN DECREASED
     Route: 042
     Dates: end: 201302

REACTIONS (1)
  - Chronic obstructive pulmonary disease [None]
